FAERS Safety Report 5932378-1 (Version None)
Quarter: 2008Q4

REPORT INFORMATION
  Report Type: 
  Country: None (occurrence: None)
  Receive Date: 20081027
  Receipt Date: 20081027
  Transmission Date: 20090506
  Serious: No
  Sender: FDA-Public Use
  Company Number: None

PATIENT
  Age: 41 Year
  Sex: Female
  Weight: 67.586 kg

DRUGS (2)
  1. METRONIDAZOLE [Suspect]
     Indication: VAGINAL INFECTION
     Dosage: 1 PILL 3 TIMES A DAY PO
     Route: 048
     Dates: start: 20081002, end: 20081003
  2. METRONIDAZOLE [Suspect]
     Indication: VAGINAL INFECTION
     Dosage: 1 PILL 3 TIMES A DAY PO
     Route: 048
     Dates: start: 20081003, end: 20081004

REACTIONS (9)
  - ARTHRALGIA [None]
  - BEDRIDDEN [None]
  - BODY TEMPERATURE INCREASED [None]
  - CHILLS [None]
  - DIZZINESS [None]
  - GAIT DISTURBANCE [None]
  - NAUSEA [None]
  - RASH PRURITIC [None]
  - VOMITING [None]
